FAERS Safety Report 5713043-2 (Version None)
Quarter: 2008Q2

REPORT INFORMATION
  Report Type: 
  Country: None (occurrence: None)
  Receive Date: 20080422
  Receipt Date: 20071022
  Transmission Date: 20081010
  Serious: Yes (Hospitalization)
  Sender: FDA-Public Use
  Company Number: IT-JNJFOC-20071006233

PATIENT
  Sex: Male

DRUGS (7)
  1. REOPRO [Suspect]
     Indication: CORONARY ANGIOPLASTY
     Route: 042
  2. HEPARIN [Concomitant]
     Route: 042
  3. TICLID [Concomitant]
     Indication: AORTIC ANEURYSM
  4. NORVASC [Concomitant]
     Indication: ESSENTIAL HYPERTENSION
  5. TOTALIP [Concomitant]
     Indication: HYPERCHOLESTEROLAEMIA
  6. AMIODARONE HCL [Concomitant]
  7. ATENOLOL [Concomitant]

REACTIONS (1)
  - NEUTROPENIA [None]
